FAERS Safety Report 7955141-9 (Version None)
Quarter: 2011Q4

REPORT INFORMATION
  Report Type: 
  Country: None (occurrence: None)
  Receive Date: 20111202
  Receipt Date: 20111124
  Transmission Date: 20120403
  Serious: Yes (Life-Threatening)
  Sender: FDA-Public Use
  Company Number: CH-GENZYME-CLOF-1001922

PATIENT
  Sex: Male
  Weight: 85 kg

DRUGS (3)
  1. IDARUBICIN HCL [Suspect]
     Indication: HAEMATOLOGICAL MALIGNANCY
     Dosage: 24 MG X 3
     Route: 042
     Dates: start: 20111112, end: 20111114
  2. CYTARABINE [Suspect]
     Indication: HAEMATOLOGICAL MALIGNANCY
     Dosage: 200 MG X 7
     Route: 042
     Dates: start: 20111112, end: 20111119
  3. EVOLTRA [Suspect]
     Indication: HAEMATOLOGICAL MALIGNANCY
     Dosage: 20 MG X 5
     Route: 042
     Dates: start: 20111112, end: 20111116

REACTIONS (1)
  - NEUTROPENIC COLITIS [None]
